FAERS Safety Report 21669438 (Version 2)
Quarter: 2022Q4

REPORT INFORMATION
  Report Type: Report from Study
  Country: KR (occurrence: KR)
  Receive Date: 20221201
  Receipt Date: 20221208
  Transmission Date: 20230113
  Serious: Yes (Life-Threatening, Other)
  Sender: FDA-Public Use
  Company Number: KR-BRISTOL-MYERS SQUIBB COMPANY-2022-144188

PATIENT
  Age: 48 Year
  Sex: Female
  Weight: 54.2 kg

DRUGS (20)
  1. IPILIMUMAB [Suspect]
     Active Substance: IPILIMUMAB
     Indication: Gastric cancer
     Dosage: ON 06-OCT-2022, THE PATIENT RECEIVED THE LAST DOSE OF IPILIMUMAB PRIOR TO EVENT ONSET.
     Route: 065
     Dates: start: 20220412, end: 20221006
  2. CAPECITABINE [Suspect]
     Active Substance: CAPECITABINE
     Indication: Gastric cancer
     Dosage: ON 30-JUN-2022 THE PATIENT RECEIVED 1200 MG/M2 ?MOST RECENT DOSE 1200 MG/M2 ON 03-NOV-2022
     Route: 048
     Dates: start: 20220413, end: 20220609
  3. CAPECITABINE [Suspect]
     Active Substance: CAPECITABINE
     Route: 048
     Dates: start: 20220630, end: 20221103
  4. OXALIPLATIN [Suspect]
     Active Substance: OXALIPLATIN
     Indication: Gastric cancer
     Dosage: ON 03-NOV-2022, THE PATIENT RECEIVED THE LAST DOSE OF OXALIPLATIN PRIOR TO THE EVENT ONSET
     Route: 065
     Dates: start: 20220412, end: 20221103
  5. OXYCODONE HYDROCHLORIDE [Concomitant]
     Active Substance: OXYCODONE HYDROCHLORIDE
     Indication: Abdominal pain
     Route: 065
  6. PENIRAMIN [Concomitant]
     Indication: Product used for unknown indication
     Route: 065
     Dates: start: 20220412
  7. DOMPERIDONE [Concomitant]
     Active Substance: DOMPERIDONE
     Indication: Dyspepsia
     Route: 065
     Dates: start: 20220412
  8. DULCOLAX-S [Concomitant]
     Indication: Constipation
     Dosage: DOSAGE= 2 DOSAGE FORMS
     Route: 048
     Dates: start: 20220503
  9. METOCLOPRAMIDE HYDROCHLORIDE [Concomitant]
     Active Substance: METOCLOPRAMIDE HYDROCHLORIDE
     Indication: Nausea
     Route: 065
     Dates: start: 20220412
  10. METOCLOPRAMIDE HYDROCHLORIDE [Concomitant]
     Active Substance: METOCLOPRAMIDE HYDROCHLORIDE
     Indication: Vomiting
  11. LOPAINE [Concomitant]
     Indication: Diarrhoea
     Route: 048
     Dates: start: 20220724
  12. MEGACE [Concomitant]
     Active Substance: MEGESTROL ACETATE
     Indication: Decreased appetite
     Dosage: DOSAGE: 2 UNK
     Route: 048
     Dates: start: 20221103
  13. DEXAMETHASONE [Concomitant]
     Active Substance: DEXAMETHASONE
     Indication: Product used for unknown indication
     Route: 065
     Dates: start: 20220412
  14. ALOXI [Concomitant]
     Active Substance: PALONOSETRON HYDROCHLORIDE
     Indication: Product used for unknown indication
     Route: 065
     Dates: start: 20220412
  15. GASTER [Concomitant]
     Active Substance: FAMOTIDINE
     Indication: Product used for unknown indication
     Route: 065
     Dates: start: 20220412
  16. EMEND [Concomitant]
     Active Substance: APREPITANT
     Indication: Nausea
     Route: 065
     Dates: start: 20220413
  17. EMEND [Concomitant]
     Active Substance: APREPITANT
     Indication: Vomiting
     Route: 065
     Dates: start: 20220412
  18. Godex [Concomitant]
     Indication: Product used for unknown indication
     Dosage: DOSAGE= 6 DF
     Route: 065
  19. URSODIOL [Concomitant]
     Active Substance: URSODIOL
     Indication: Product used for unknown indication
     Route: 065
  20. ULTRACET ER SEMI [Concomitant]
     Indication: Abdominal pain
     Dosage: DOSAGE:325 UNK
     Route: 048

REACTIONS (1)
  - Gastrointestinal haemorrhage [Recovered/Resolved]

NARRATIVE: CASE EVENT DATE: 20221122
